FAERS Safety Report 8500074-2 (Version None)
Quarter: 2012Q3

REPORT INFORMATION
  Report Type: 
  Country: None (occurrence: None)
  Receive Date: 20120710
  Receipt Date: 20120706
  Transmission Date: 20120928
  Serious: Yes (Hospitalization)
  Sender: FDA-Public Use
  Company Number: US-BAYER-2012-055837

PATIENT
  Age: 26 Year
  Sex: Female
  Weight: 87.528 kg

DRUGS (11)
  1. FLONASE [Concomitant]
     Dosage: 50 MCG
     Dates: start: 20100621
  2. TYLENOL W/ CODEINE NO. 3 [Concomitant]
     Dosage: 300-30MG
     Route: 048
     Dates: start: 20100911
  3. OMEPRAZOLE [Concomitant]
     Dosage: 20 MG, UNK
     Route: 048
     Dates: start: 20100911
  4. SENOKOT [Concomitant]
  5. DESONIDE [Concomitant]
  6. IBUPROFEN (ADVIL) [Concomitant]
     Indication: PAIN
  7. YASMIN [Suspect]
     Indication: ACNE
     Dosage: UNK
     Dates: start: 20081001, end: 20100901
  8. YASMIN [Suspect]
     Indication: METRORRHAGIA
  9. ACETAMINOPHEN W/ CODEINE [Concomitant]
  10. DOCUSATE SODIUM W/SENNOSIDE A+B [Concomitant]
     Dosage: 8.6-50MG
     Route: 048
     Dates: start: 20100911
  11. RIZATRIPTAN [Concomitant]
     Dosage: 5 MG, UNK
     Route: 048
     Dates: start: 20100911

REACTIONS (1)
  - PULMONARY EMBOLISM [None]
